FAERS Safety Report 16735100 (Version 1)
Quarter: 2019Q3

REPORT INFORMATION
  Report Type: Spontaneous
  Country: US (occurrence: US)
  Receive Date: 20190708
  Receipt Date: 20190708
  Transmission Date: 20191005
  Serious: No
  Sender: FDA-Public Use
  Company Number: None

PATIENT
  Age: 75 Year
  Sex: Male

DRUGS (1)
  1. ABIRATERONE ACETATE 250MG JANSSEN BIOTECH [Suspect]
     Active Substance: ABIRATERONE ACETATE
     Indication: PROSTATE CANCER
     Route: 048
     Dates: start: 20190530

REACTIONS (3)
  - Fatigue [None]
  - Dizziness [None]
  - Therapeutic response changed [None]

NARRATIVE: CASE EVENT DATE: 201906
